FAERS Safety Report 4308978-1 (Version None)
Quarter: 2004Q1

REPORT INFORMATION
  Report Type: 
  Country: None (occurrence: None)
  Receive Date: 20040227
  Receipt Date: 20040218
  Transmission Date: 20041129
  Serious: Yes (Hospitalization)
  Sender: FDA-Public Use
  Company Number: DE-JNJFOC-20040204362

PATIENT
  Age: 80 Year
  Sex: Male

DRUGS (4)
  1. TRAMADOL HCL [Suspect]
     Indication: BACK PAIN
     Dosage: 150 MG, 2 IN 1 DAY, ORAL
     Route: 048
     Dates: start: 20030801, end: 20031202
  2. BELOC-ZOC (BELOC-ZOC COMP) [Suspect]
     Indication: HYPERTENSION
     Dosage: 23.75 MG, 1 IN 1 DAY, ORAL
     Route: 048
     Dates: start: 20010101
  3. ALNA (TAMSULOSIN HYDROCHLORIDE) [Concomitant]
  4. PANTOZOL (PANTOPRAZOLE SODIUM) [Concomitant]

REACTIONS (4)
  - BLOOD ALKALINE PHOSPHATASE INCREASED [None]
  - CHOLESTASIS [None]
  - DRUG INTERACTION [None]
  - GAMMA-GLUTAMYLTRANSFERASE INCREASED [None]
